FAERS Safety Report 7275542-4 (Version None)
Quarter: 2011Q1

REPORT INFORMATION
  Report Type: 
  Country: None (occurrence: None)
  Receive Date: 20110204
  Receipt Date: 20110131
  Transmission Date: 20110831
  Serious: Yes (Hospitalization, Disabling, Other)
  Sender: FDA-Public Use
  Company Number: US-AMGEN-USASP2011001794

PATIENT
  Age: 64 Year
  Sex: Female

DRUGS (11)
  1. AMLODIPINE [Concomitant]
     Dosage: 5 MG, QD
     Route: 048
     Dates: start: 20100712
  2. CARBOPLATIN [Concomitant]
     Dosage: UNK
     Dates: start: 20100101
  3. LIDOCAINE/PRILOCAINE [Concomitant]
     Dosage: UNK
     Route: 061
     Dates: start: 20100823
  4. MOMETASONE FUROATE [Concomitant]
     Dosage: UNK UNK, BID
     Dates: start: 20101216
  5. PROMETHAZINE [Concomitant]
     Dosage: 25 MG, UNK
     Route: 048
     Dates: start: 20100809
  6. LORATADINE [Concomitant]
     Dosage: 10 MG, QD
     Route: 048
     Dates: start: 20101216
  7. TAXOL [Concomitant]
     Dosage: UNK
     Dates: start: 20100101
  8. DEXAMETHASONE [Concomitant]
     Dosage: 4 MG, UNK
     Route: 048
     Dates: start: 20100809
  9. LORAZEPAM [Concomitant]
     Dosage: 1 MG, UNK
     Dates: start: 20100809
  10. MEPERIDINE HCL [Concomitant]
     Dosage: 25 MG, UNK
     Route: 048
     Dates: start: 20100914
  11. NEULASTA [Suspect]
     Indication: CHEMOTHERAPY
     Dosage: 6 MG, UNK
     Route: 058
     Dates: start: 20100831

REACTIONS (9)
  - PAIN [None]
  - PRESYNCOPE [None]
  - WALKING AID USER [None]
  - ACTIVITIES OF DAILY LIVING IMPAIRED [None]
  - THROMBOSIS [None]
  - NEUROPATHY PERIPHERAL [None]
  - GAIT DISTURBANCE [None]
  - PERIPHERAL COLDNESS [None]
  - DYSSTASIA [None]
